FAERS Safety Report 7635592-2 (Version None)
Quarter: 2011Q3

REPORT INFORMATION
  Report Type: 
  Country: None (occurrence: None)
  Receive Date: 20110718
  Receipt Date: 20110706
  Transmission Date: 20111222
  Serious: Yes (Other)
  Sender: FDA-Public Use
  Company Number: 2011GB0217

PATIENT
  Age: 16 Year
  Sex: Female

DRUGS (1)
  1. ANAKINRA (ANAKINRA) [Suspect]
     Indication: INFLAMMATION

REACTIONS (2)
  - ABDOMINAL PAIN [None]
  - ASCITES [None]
